FAERS Safety Report 7213220-8 (Version None)
Quarter: 2011Q1

REPORT INFORMATION
  Report Type: 
  Country: None (occurrence: None)
  Receive Date: 20110106
  Receipt Date: 20110105
  Transmission Date: 20110831
  Serious: Yes (Other)
  Sender: FDA-Public Use
  Company Number: NL-TEVA-261014ISR

PATIENT
  Age: 69 Year
  Sex: Female

DRUGS (8)
  1. CHLORTHALIDONE [Concomitant]
  2. GLIMEPIRIDE [Concomitant]
  3. BISACODYL [Concomitant]
  4. MICONAZOLE [Suspect]
     Indication: FUNGAL INFECTION
     Dosage: 20MG/G
  5. FOSINOPRIL SODIUM [Concomitant]
  6. METOPROLOL [Concomitant]
  7. ACENOCOUMAROL [Interacting]
  8. METFORMIN HCL [Concomitant]

REACTIONS (2)
  - DRUG INTERACTION [None]
  - COAGULATION TEST ABNORMAL [None]
